FAERS Safety Report 15326226 (Version 1)
Quarter: 2018Q4

REPORT INFORMATION
  Report Type: Spontaneous
  Country: FR (occurrence: FR)
  Receive Date: 20180828
  Receipt Date: 20180828
  Transmission Date: 20190204
  Serious: Yes (Hospitalization)
  Sender: FDA-Public Use
  Company Number: FR-PFIZER INC-2018337921

PATIENT
  Age: 31 Year
  Sex: Female

DRUGS (9)
  1. XEROQUEL [Suspect]
     Active Substance: QUETIAPINE FUMARATE
  2. VALIUM [Suspect]
     Active Substance: DIAZEPAM
  3. SALBUTAMOL [Suspect]
     Active Substance: ALBUTEROL
  4. ACUPAN [Suspect]
     Active Substance: NEFOPAM HYDROCHLORIDE
  5. LAMALINE (ACETAMINOPHEN\CAFFEINE\OPIUM) [Suspect]
     Active Substance: ACETAMINOPHEN\CAFFEINE\OPIUM
  6. AUGMENTIN BD [Suspect]
     Active Substance: AMOXICILLIN\CLAVULANIC ACID
  7. RELPAX [Suspect]
     Active Substance: ELETRIPTAN HYDROBROMIDE
  8. NAPROXENE EG [Suspect]
     Active Substance: NAPROXEN
  9. LAROXYL [Suspect]
     Active Substance: AMITRIPTYLINE HYDROCHLORIDE

REACTIONS (2)
  - Drug dependence [Not Recovered/Not Resolved]
  - Cholestasis [Recovering/Resolving]
